FAERS Safety Report 9514295 (Version 2)
Quarter: 2013Q3

REPORT INFORMATION
  Report Type: Spontaneous
  Country: FR (occurrence: FR)
  Receive Date: 20130910
  Receipt Date: 20130924
  Transmission Date: 20140515
  Serious: No
  Sender: FDA-Public Use
  Company Number: FR-ROCHE-1270926

PATIENT
  Age: 64 Year
  Sex: Male

DRUGS (1)
  1. ZELBORAF [Suspect]
     Indication: METASTATIC MALIGNANT MELANOMA
     Route: 048
     Dates: start: 20130719

REACTIONS (2)
  - Burning sensation [Recovering/Resolving]
  - Drug interaction [Unknown]
